FAERS Safety Report 4940311-4 (Version None)
Quarter: 2006Q1

REPORT INFORMATION
  Report Type: 
  Country: None (occurrence: None)
  Receive Date: 20060310
  Receipt Date: 20060301
  Transmission Date: 20060701
  Serious: Yes (Hospitalization)
  Sender: FDA-Public Use
  Company Number: US-MERCK-0603USA00433

PATIENT
  Age: 63 Year
  Sex: Female
  Weight: 72 kg

DRUGS (1)
  1. VIOXX [Suspect]
     Indication: ARTHRITIS
     Route: 048
     Dates: start: 19991203, end: 20031021

REACTIONS (5)
  - BRONCHITIS ACUTE [None]
  - CORONARY ARTERY DISEASE [None]
  - DYSPNOEA [None]
  - HAEMARTHROSIS [None]
  - MYOCARDIAL INFARCTION [None]
